FAERS Safety Report 13722497 (Version 2)
Quarter: 2017Q3

REPORT INFORMATION
  Report Type: Spontaneous
  Country: TW (occurrence: TW)
  Receive Date: 20170706
  Receipt Date: 20170712
  Transmission Date: 20171127
  Serious: Yes (Hospitalization, Other)
  Sender: FDA-Public Use
  Company Number: TW-PFIZER INC-2017290707

PATIENT
  Age: 61 Year
  Sex: Male
  Weight: 72 kg

DRUGS (3)
  1. IBUPROFEN. [Suspect]
     Active Substance: IBUPROFEN
     Indication: UPPER RESPIRATORY TRACT INFECTION
     Dosage: 400 MG, 3X/DAY (TID)
     Route: 048
     Dates: start: 20160704, end: 20160704
  2. LORATADINE. [Concomitant]
     Active Substance: LORATADINE
     Indication: UPPER RESPIRATORY TRACT INFECTION
     Dosage: 10 MG, 1X/DAY (QD)
     Route: 048
     Dates: start: 20160704
  3. NOSCAPINE [Concomitant]
     Active Substance: NOSCAPINE
     Indication: UPPER RESPIRATORY TRACT INFECTION
     Dosage: 20 MG, 3X/DAY (TID)
     Route: 048
     Dates: start: 20160704

REACTIONS (1)
  - Fixed eruption [Recovering/Resolving]

NARRATIVE: CASE EVENT DATE: 20160704
